APPROVED DRUG PRODUCT: PRAVASTATIN SODIUM
Active Ingredient: PRAVASTATIN SODIUM
Strength: 40MG
Dosage Form/Route: TABLET;ORAL
Application: A076939 | Product #002 | TE Code: AB
Applicant: WATSON LABORATORIES INC
Approved: Oct 23, 2006 | RLD: No | RS: No | Type: RX